FAERS Safety Report 6581551-0 (Version None)
Quarter: 2010Q1

REPORT INFORMATION
  Report Type: 
  Country: None (occurrence: None)
  Receive Date: 20100203
  Receipt Date: 20100120
  Transmission Date: 20100710
  Serious: Yes (Other)
  Sender: FDA-Public Use
  Company Number: GB-2010-0132

PATIENT
  Sex: Female

DRUGS (2)
  1. NAVELBINE [Suspect]
     Dosage: 25 MG/M2 IV
     Route: 042
  2. EPIRUBICIN [Suspect]
     Indication: BREAST CANCER
     Dosage: 35 MG/M2 IV
     Route: 042

REACTIONS (1)
  - AMENORRHOEA [None]
